FAERS Safety Report 16186771 (Version 1)
Quarter: 2019Q2

REPORT INFORMATION
  Report Type: Spontaneous
  Country: GB (occurrence: GB)
  Receive Date: 20190411
  Receipt Date: 20190411
  Transmission Date: 20190711
  Serious: Yes (Other)
  Sender: FDA-Public Use
  Company Number: GB-BAUSCH-BL-2019-010385

PATIENT
  Sex: Female

DRUGS (1)
  1. MINIMS DEXAMETHASONE 0.1%  W/V EYE DROPS, SOLUTION [Suspect]
     Active Substance: DEXAMETHASONE SODIUM PHOSPHATE
     Indication: POSTOPERATIVE CARE
     Dosage: 4 TIMES A DAY FOR 18 MONTHS
     Route: 065
     Dates: start: 2017

REACTIONS (5)
  - Corneal opacity [Unknown]
  - Eye disorder [Not Recovered/Not Resolved]
  - Product storage error [Unknown]
  - Corneal thickening [Not Recovered/Not Resolved]
  - Transplant failure [Not Recovered/Not Resolved]
